FAERS Safety Report 25336740 (Version 2)
Quarter: 2025Q4

REPORT INFORMATION
  Report Type: Report from Study
  Country: EU (occurrence: None)
  Receive Date: 20250520
  Receipt Date: 20251206
  Transmission Date: 20260117
  Serious: Yes (Other)
  Sender: UCB
  Company Number: EU-UCBSA-2025028314

PATIENT
  Weight: 70 kg

DRUGS (1)
  1. ROZANOLIXIZUMAB [Suspect]
     Active Substance: ROZANOLIXIZUMAB
     Indication: Myasthenia gravis
     Dosage: STRENGTH:140, 2 VIALS OF THE DRUG

REACTIONS (2)
  - Myasthenia gravis [Unknown]
  - Drug ineffective [Unknown]
